FAERS Safety Report 8115470-5 (Version None)
Quarter: 2012Q1

REPORT INFORMATION
  Report Type: 
  Country: None (occurrence: None)
  Receive Date: 20120206
  Receipt Date: 20120123
  Transmission Date: 20120608
  Serious: Yes (Hospitalization)
  Sender: FDA-Public Use
  Company Number: TN-JNJFOC-20120110907

PATIENT
  Age: 31 Year
  Sex: Female

DRUGS (1)
  1. PARACETAMOL/PSEUDOEPHEDRINE [Suspect]
     Indication: RHINITIS
     Route: 048

REACTIONS (1)
  - ACUTE GENERALISED EXANTHEMATOUS PUSTULOSIS [None]
